FAERS Safety Report 16013847 (Version 12)
Quarter: 2022Q2

REPORT INFORMATION
  Report Type: Spontaneous
  Country: US (occurrence: US)
  Receive Date: 20190227
  Receipt Date: 20220502
  Transmission Date: 20220720
  Serious: Yes (Hospitalization)
  Sender: FDA-Public Use
  Company Number: US-SA-2019SA053196

PATIENT
  Age: 55 Year
  Sex: Female
  Weight: 122 kg

DRUGS (1)
  1. CEREZYME [Suspect]
     Active Substance: IMIGLUCERASE
     Indication: Gaucher^s disease
     Dosage: 3600 U, QOW
     Route: 041
     Dates: start: 20130828

REACTIONS (5)
  - COVID-19 [Unknown]
  - Weight decreased [Unknown]
  - Illness [Unknown]
  - Pain in extremity [Unknown]
  - Product dose omission issue [Unknown]
